FAERS Safety Report 23664265 (Version 1)
Quarter: 2024Q1

REPORT INFORMATION
  Report Type: Report from Study
  Country: CA (occurrence: CA)
  Receive Date: 20240322
  Receipt Date: 20240322
  Transmission Date: 20240409
  Serious: Yes (Other)
  Sender: FDA-Public Use
  Company Number: CA-GLAXOSMITHKLINE-CA2024033664

PATIENT

DRUGS (1)
  1. BELIMUMAB [Suspect]
     Active Substance: BELIMUMAB
     Indication: Systemic lupus erythematosus
     Dosage: UNK, Q4W (816 MG, 400 MG IN 20 ML VIAL LYOPHILIZED POWDER)
     Route: 042
     Dates: start: 20120112

REACTIONS (2)
  - Surgery [Unknown]
  - Infection [Unknown]

NARRATIVE: CASE EVENT DATE: 20240307
